FAERS Safety Report 6255096-1 (Version None)
Quarter: 2009Q3

REPORT INFORMATION
  Report Type: 
  Country: None (occurrence: None)
  Receive Date: 20090702
  Receipt Date: 20090622
  Transmission Date: 20100115
  Serious: Yes (Other)
  Sender: FDA-Public Use
  Company Number: GB-PFIZER INC-2009230104

PATIENT
  Age: 41 Year

DRUGS (4)
  1. GABAPENTIN [Suspect]
     Dosage: 900 MG, UNK
     Route: 048
  2. ZONEGRAN [Interacting]
     Indication: EPILEPSY
     Dosage: 200 MG, 1X/DAY
     Route: 048
     Dates: start: 20080605
  3. ZONEGRAN [Interacting]
     Dosage: 25 MG, 1X/DAY
     Route: 048
     Dates: start: 20090101
  4. ZONEGRAN [Interacting]
     Dosage: UNK
     Route: 048

REACTIONS (2)
  - DRUG INTERACTION [None]
  - MUTISM [None]
